FAERS Safety Report 12530708 (Version 1)
Quarter: 2016Q3

REPORT INFORMATION
  Report Type: Spontaneous
  Country: US (occurrence: US)
  Receive Date: 20160706
  Receipt Date: 20160706
  Transmission Date: 20161109
  Serious: No
  Sender: FDA-Public Use
  Company Number: US-BAYER-2016-125164

PATIENT
  Sex: Female

DRUGS (5)
  1. ALEVE [Suspect]
     Active Substance: NAPROXEN SODIUM
     Dosage: UNK
  2. TYLENOL [Concomitant]
     Active Substance: ACETAMINOPHEN
     Dosage: UNK
  3. ADVIL [Concomitant]
     Active Substance: IBUPROFEN
     Indication: ARTHRITIS
  4. ADVIL [Concomitant]
     Active Substance: IBUPROFEN
     Indication: HEADACHE
     Dosage: UNK
  5. MOTRIN [Concomitant]
     Active Substance: IBUPROFEN

REACTIONS (3)
  - Drug ineffective [None]
  - Labelled drug-drug interaction medication error [None]
  - Product use issue [None]
